FAERS Safety Report 8245127-1 (Version None)
Quarter: 2012Q1

REPORT INFORMATION
  Report Type: 
  Country: None (occurrence: None)
  Receive Date: 20120329
  Receipt Date: 20120119
  Transmission Date: 20120608
  Serious: Yes (Death)
  Sender: FDA-Public Use
  Company Number: DE-GLAXOSMITHKLINE-D0074177A

PATIENT
  Sex: Female
  Weight: 80 kg

DRUGS (7)
  1. ARIXTRA [Suspect]
     Indication: THROMBOSIS PROPHYLAXIS
     Dosage: 2.5MG PER DAY
     Route: 058
     Dates: start: 20120106, end: 20120109
  2. BISOPROLOL FUMARATE [Concomitant]
     Indication: HYPERTENSION
     Route: 048
  3. AMLODIPINE [Concomitant]
     Indication: HYPERTENSION
     Route: 048
  4. PREDNISOLONE [Concomitant]
     Indication: CHRONIC OBSTRUCTIVE PULMONARY DISEASE
     Route: 042
     Dates: start: 20120106, end: 20120109
  5. TAZOBACTAM [Concomitant]
     Indication: CHRONIC OBSTRUCTIVE PULMONARY DISEASE
     Dosage: 4.5G THREE TIMES PER DAY
     Route: 042
     Dates: start: 20120106, end: 20120109
  6. LOSARTAN POTASSIUM [Concomitant]
     Indication: HYPERTENSION
     Route: 048
  7. ASPIRIN [Suspect]
     Dosage: 100MG PER DAY
     Route: 048
     Dates: end: 20120109

REACTIONS (5)
  - SHOCK HAEMORRHAGIC [None]
  - ENDOTRACHEAL INTUBATION [None]
  - RETROPERITONEAL HAEMATOMA [None]
  - HAEMODIALYSIS [None]
  - MECHANICAL VENTILATION [None]
